FAERS Safety Report 9189890 (Version 1)
Quarter: 2013Q1

REPORT INFORMATION
  Report Type: Spontaneous
  Country: US (occurrence: None)
  Receive Date: 20120703
  Receipt Date: 20120703
  Transmission Date: 20140127
  Serious: No
  Sender: FDA-Public Use
  Company Number: PHEH2012US009543

PATIENT
  Age: 59 Year
  Sex: Female

DRUGS (4)
  1. GILENYA (FTY) CAPSULE [Suspect]
     Route: 048
  2. DICYCLOMINE (DICYCLOVERINE) [Concomitant]
  3. MULTI-DAY TABLET [Concomitant]
  4. IRON (IRON) [Concomitant]

REACTIONS (3)
  - Dizziness [None]
  - Diarrhoea [None]
  - Dysgeusia [None]
